FAERS Safety Report 24780976 (Version 1)
Quarter: 2024Q4

REPORT INFORMATION
  Report Type: Spontaneous
  Country: GB (occurrence: GB)
  Receive Date: 20241227
  Receipt Date: 20241227
  Transmission Date: 20250114
  Serious: Yes (Disabling)
  Sender: ORGANON
  Company Number: None

PATIENT

DRUGS (1)
  1. FINASTERIDE [Suspect]
     Active Substance: FINASTERIDE
     Indication: Androgenetic alopecia
     Dosage: 1 MILLIGRAM
     Dates: start: 20190103, end: 20191201

REACTIONS (1)
  - Pelvic floor dysfunction [Not Recovered/Not Resolved]
